FAERS Safety Report 9508824 (Version 1)
Quarter: 2013Q3

REPORT INFORMATION
  Report Type: Spontaneous
  Country: US (occurrence: US)
  Receive Date: 20130909
  Receipt Date: 20130909
  Transmission Date: 20140515
  Serious: No
  Sender: FDA-Public Use
  Company Number: US-BRISTOL-MYERS SQUIBB COMPANY-17409459

PATIENT
  Age: 6 Year
  Sex: Male

DRUGS (3)
  1. ABILIFY TABS 5 MG [Suspect]
     Indication: AFFECTIVE DISORDER
     Dates: start: 201210
  2. CLONIDINE [Suspect]
     Dosage: 0.05 MG (EVERY MORNING),0.2 MG (AT BEDTIME
  3. CONCERTA [Suspect]
     Dates: start: 201210

REACTIONS (5)
  - Dysarthria [Recovering/Resolving]
  - Nasopharyngitis [Recovering/Resolving]
  - Feeling abnormal [Recovering/Resolving]
  - Muscle rigidity [Recovering/Resolving]
  - Dyskinesia [Recovering/Resolving]
